FAERS Safety Report 9729430 (Version 1)
Quarter: 2013Q4

REPORT INFORMATION
  Report Type: Spontaneous
  Country: US (occurrence: US)
  Receive Date: 20131204
  Receipt Date: 20131204
  Transmission Date: 20140711
  Serious: No
  Sender: FDA-Public Use
  Company Number: US-GILEAD-2009-0021260

PATIENT
  Sex: Female
  Weight: 77.11 kg

DRUGS (13)
  1. LETAIRIS [Suspect]
     Indication: PULMONARY ARTERIAL HYPERTENSION
     Route: 048
     Dates: start: 20090312
  2. AMLODIPINE [Concomitant]
  3. COUMADIN [Concomitant]
  4. LISINOPRIL [Concomitant]
  5. TOPROL XL [Concomitant]
  6. HYDRALAZINE [Concomitant]
  7. LASIX [Concomitant]
  8. ALLOPURINOL [Concomitant]
  9. DIOVAN [Concomitant]
  10. NEXIUM [Concomitant]
  11. VITAMIN C [Concomitant]
  12. VITAMIN E [Concomitant]
  13. ZYRTEC [Concomitant]

REACTIONS (3)
  - Nausea [Unknown]
  - Dyspnoea [Unknown]
  - Flushing [Unknown]
